FAERS Safety Report 11395892 (Version 1)
Quarter: 2015Q3

REPORT INFORMATION
  Report Type: Spontaneous
  Country: US (occurrence: None)
  Receive Date: 20150817
  Receipt Date: 20150817
  Transmission Date: 20151125
  Serious: No
  Sender: FDA-Public Use
  Company Number: None

PATIENT
  Age: 84 Year
  Sex: Male

DRUGS (3)
  1. HEPARIN [Suspect]
     Active Substance: HEPARIN SODIUM
     Indication: URINARY TRACT INFECTION
     Dosage: 5000 UNITS
     Route: 058
     Dates: start: 20120531, end: 20120531
  2. HEPARIN [Suspect]
     Active Substance: HEPARIN SODIUM
     Indication: HYPERGLYCAEMIA
     Dosage: 5000 UNITS
     Route: 058
     Dates: start: 20120531, end: 20120531
  3. HEPARIN [Suspect]
     Active Substance: HEPARIN SODIUM
     Indication: HYPERNATRAEMIA
     Dosage: 5000 UNITS
     Route: 058
     Dates: start: 20120531, end: 20120531

REACTIONS (1)
  - Thrombocytopenia [None]

NARRATIVE: CASE EVENT DATE: 20120531
